FAERS Safety Report 23294485 (Version 2)
Quarter: 2024Q1

REPORT INFORMATION
  Report Type: Spontaneous
  Country: US (occurrence: US)
  Receive Date: 20231213
  Receipt Date: 20240312
  Transmission Date: 20240410
  Serious: Yes (Other)
  Sender: FDA-Public Use
  Company Number: US-PFIZER INC-PV202300199976

PATIENT
  Age: 86 Year
  Sex: Female
  Weight: 64.8 kg

DRUGS (3)
  1. IBRANCE [Suspect]
     Active Substance: PALBOCICLIB
     Indication: Breast cancer female
     Dosage: 125 MG, CYCLIC (TAKE FOR 21 DAYS FOLLOWED BY 7 DAYS OFF FOR A 28 DAY CYCLE)
     Route: 048
     Dates: start: 20231107
  2. IBRANCE [Suspect]
     Active Substance: PALBOCICLIB
     Indication: Bone cancer
     Dosage: 75 MG, CYCLIC (TAKE 1 TABLET BY MOUTH DAILY FOR 21 DAYS W 7 DAY REST, 28 DAY CYCLE)
     Route: 048
     Dates: start: 202401
  3. IBRANCE [Suspect]
     Active Substance: PALBOCICLIB
     Indication: Invasive ductal breast carcinoma

REACTIONS (8)
  - Neutropenia [Recovering/Resolving]
  - Fatigue [Unknown]
  - Asthenia [Unknown]
  - Nausea [Unknown]
  - Decreased appetite [Unknown]
  - Insomnia [Unknown]
  - Back pain [Unknown]
  - Drug intolerance [Unknown]

NARRATIVE: CASE EVENT DATE: 20231206
